FAERS Safety Report 12666315 (Version 3)
Quarter: 2020Q4

REPORT INFORMATION
  Report Type: Spontaneous
  Country: US (occurrence: US)
  Receive Date: 20160818
  Receipt Date: 20201027
  Transmission Date: 20210113
  Serious: No
  Sender: FDA-Public Use
  Company Number: US-JAZZ-2016-US-005744

PATIENT
  Age: 50 Year
  Sex: Female

DRUGS (38)
  1. XYREM [Suspect]
     Active Substance: SODIUM OXYBATE
     Indication: SOMNOLENCE
     Dosage: 1.5 G, BID
     Route: 048
     Dates: start: 201506, end: 201508
  2. VITAMIN D2 [Concomitant]
     Active Substance: ERGOCALCIFEROL
  3. CYCLOBENZAPRINE [CYCLOBENZAPRINE HYDROCHLORIDE] [Concomitant]
     Active Substance: CYCLOBENZAPRINE HYDROCHLORIDE
  4. LUNESTA [Concomitant]
     Active Substance: ESZOPICLONE
  5. TEMAZEPAM. [Concomitant]
     Active Substance: TEMAZEPAM
  6. SYNTHROID [Concomitant]
     Active Substance: LEVOTHYROXINE SODIUM
  7. REMERON [Concomitant]
     Active Substance: MIRTAZAPINE
  8. ZYRTEC [Concomitant]
     Active Substance: CETIRIZINE HYDROCHLORIDE
  9. XYREM [Suspect]
     Active Substance: SODIUM OXYBATE
     Indication: NARCOLEPSY
     Dosage: 2.5 G, BID
     Route: 048
     Dates: start: 201508, end: 201510
  10. CYTOMEL [Concomitant]
     Active Substance: LIOTHYRONINE SODIUM
  11. BIOTIN [Concomitant]
     Active Substance: BIOTIN
  12. METAXALONE. [Concomitant]
     Active Substance: METAXALONE
  13. TOBRAMYCIN. [Concomitant]
     Active Substance: TOBRAMYCIN
  14. LIOTHYRONINE SODIUM. [Concomitant]
     Active Substance: LIOTHYRONINE SODIUM
  15. OMEPRAZOLE. [Concomitant]
     Active Substance: OMEPRAZOLE
  16. VITAMIN B12 [Concomitant]
     Active Substance: CYANOCOBALAMIN
  17. DIPHENHYDRAMINE HCL [Concomitant]
     Active Substance: DIPHENHYDRAMINE HYDROCHLORIDE
  18. ZETONNA [Concomitant]
     Active Substance: CICLESONIDE
  19. PROGESTERONE. [Concomitant]
     Active Substance: PROGESTERONE
  20. GARLIC [ALLIUM SATIVUM] [Concomitant]
     Active Substance: GARLIC
  21. TOPIRAMATE. [Concomitant]
     Active Substance: TOPIRAMATE
  22. ECHINACEA [ECHINACEA PURPUREA] [Concomitant]
  23. SKELAXIN [Suspect]
     Active Substance: METAXALONE
     Indication: PRODUCT USED FOR UNKNOWN INDICATION
     Dosage: UNK
     Dates: start: 20150930
  24. GABAPENTIN. [Suspect]
     Active Substance: GABAPENTIN
     Indication: PRODUCT USED FOR UNKNOWN INDICATION
  25. IMMUNE BOOST [Concomitant]
     Active Substance: DIETARY SUPPLEMENT
  26. AMOXICILLIN [AMOXICILLIN TRIHYDRATE] [Concomitant]
     Active Substance: AMOXICILLIN
  27. KLOR-CON [Concomitant]
     Active Substance: POTASSIUM CHLORIDE
  28. ALEVE [Concomitant]
     Active Substance: NAPROXEN SODIUM
  29. XOPENEX HFA [Concomitant]
     Active Substance: LEVALBUTEROL TARTRATE
  30. NUVIGIL [Concomitant]
     Active Substance: ARMODAFINIL
  31. ARMOUR THYROID [Concomitant]
     Active Substance: THYROID, PORCINE
  32. XYREM [Suspect]
     Active Substance: SODIUM OXYBATE
     Indication: CATAPLEXY
     Dosage: 4 G, BID
     Route: 048
     Dates: start: 201510
  33. TESTOSTERONE. [Concomitant]
     Active Substance: TESTOSTERONE
  34. TESSALON [Concomitant]
     Active Substance: BENZONATATE
  35. FISH OIL [Concomitant]
     Active Substance: FISH OIL
  36. EXCEDRIN MIGRAINE [Concomitant]
     Active Substance: ACETAMINOPHEN\ASPIRIN\CAFFEINE
  37. VITAMIN C [Concomitant]
     Active Substance: ASCORBIC ACID
  38. IMMUNOCAL [Concomitant]

REACTIONS (6)
  - Drug ineffective [Unknown]
  - Hypersomnia [Unknown]
  - Fibromyalgia [Not Recovered/Not Resolved]
  - Herpes zoster [Not Recovered/Not Resolved]
  - Vitamin D decreased [Unknown]
  - Wrong technique in product usage process [Unknown]

NARRATIVE: CASE EVENT DATE: 20200810
